FAERS Safety Report 10279958 (Version 2)
Quarter: 2014Q3

REPORT INFORMATION
  Report Type: Spontaneous
  Country: GR (occurrence: GR)
  Receive Date: 20140707
  Receipt Date: 20140711
  Transmission Date: 20150326
  Serious: Yes (Congenital Anomaly)
  Sender: FDA-Public Use
  Company Number: GR-PFIZER INC-2014184624

PATIENT

DRUGS (1)
  1. DOSTINEX [Suspect]
     Active Substance: CABERGOLINE
     Indication: HYPERPROLACTINAEMIA
     Dosage: 0.25 MG (HALF A 0.5MG TAB), 2X/WEEK
     Route: 064
     Dates: start: 201404, end: 201405

REACTIONS (2)
  - Maternal exposure during pregnancy [Unknown]
  - Trisomy 18 [Unknown]

NARRATIVE: CASE EVENT DATE: 201405
